FAERS Safety Report 4351890-2 (Version None)
Quarter: 2004Q2

REPORT INFORMATION
  Report Type: 
  Country: None (occurrence: None)
  Receive Date: 20040429
  Receipt Date: 20031013
  Transmission Date: 20050107
  Serious: No
  Sender: FDA-Public Use
  Company Number: 2003-108951-NL

PATIENT
  Age: 36 Year
  Sex: Female

DRUGS (3)
  1. NUVARING [Suspect]
     Dates: start: 20030622
  2. ADVIL [Concomitant]
  3. MONISTAT [Concomitant]

REACTIONS (2)
  - DEVICE FAILURE [None]
  - MEDICAL DEVICE DISCOMFORT [None]
